FAERS Safety Report 14558247 (Version 2)
Quarter: 2018Q1

REPORT INFORMATION
  Report Type: Report from Study
  Country: GB (occurrence: GB)
  Receive Date: 20180221
  Receipt Date: 20180227
  Transmission Date: 20180509
  Serious: Yes (Other)
  Sender: FDA-Public Use
  Company Number: GB-GILEAD-2018-0321072

PATIENT
  Age: 62 Year
  Sex: Male

DRUGS (9)
  1. RITUXIMAB. [Suspect]
     Active Substance: RITUXIMAB
     Indication: B-CELL PROLYMPHOCYTIC LEUKAEMIA
     Dosage: GIVEN 2-WEEKLY (CYCLE 1-2) AND THEN 4-WEEKLY (CYCLES 3- 6), FOR 28 DAYS
     Route: 042
  2. IDELALISIB [Suspect]
     Active Substance: IDELALISIB
     Dosage: 300 MG, 6 CYCLE FOR 28 DAYS
     Route: 065
  3. IDELALISIB [Suspect]
     Active Substance: IDELALISIB
     Dosage: 200 MG, 6 CYCLE FOR 28 DAYS
     Route: 065
  4. BUDESONIDE. [Concomitant]
     Active Substance: BUDESONIDE
     Route: 065
  5. IDELALISIB [Suspect]
     Active Substance: IDELALISIB
     Dosage: 150 MG, 6 CYCLE FOR 28 DAYS
     Route: 065
  6. IDELALISIB [Suspect]
     Active Substance: IDELALISIB
     Dosage: 100 MG, 6 CYCLE FOR 28 DAYS
     Route: 065
  7. METHYLPREDNISOLONE. [Concomitant]
     Active Substance: METHYLPREDNISOLONE
     Dosage: DOSE: 1G/M3  3 PULSES (5 D, 5 D, AND 2 D) IN THE 3 MONTHS
     Route: 065
  8. IDELALISIB [Suspect]
     Active Substance: IDELALISIB
     Indication: B-CELL PROLYMPHOCYTIC LEUKAEMIA
     Dosage: 100 MG, ON ALTERNATE DAY, CYCLE 2
     Route: 065
  9. IDELALISIB [Suspect]
     Active Substance: IDELALISIB
     Dosage: 100 MG, ON DAILY, CYCLE 3
     Route: 065

REACTIONS (1)
  - Alanine aminotransferase increased [Recovered/Resolved]
